FAERS Safety Report 6895071-7 (Version None)
Quarter: 2010Q3

REPORT INFORMATION
  Report Type: 
  Country: None (occurrence: None)
  Receive Date: 20100730
  Receipt Date: 20100730
  Transmission Date: 20110219
  Serious: Yes (Hospitalization)
  Sender: FDA-Public Use
  Company Number: None

PATIENT
  Age: 67 Year
  Sex: Male
  Weight: 159.21 kg

DRUGS (3)
  1. WARFARIN [Suspect]
     Indication: PULMONARY EMBOLISM
     Dosage: 10 MG PM PO
     Route: 048
     Dates: start: 20090731, end: 20100722
  2. ASPIRIN [Suspect]
     Indication: CARDIOVASCULAR EVENT PROPHYLAXIS
     Dosage: 81 MG EVERY DAY PO
     Route: 048
     Dates: start: 20090728, end: 20100722
  3. ASPIRIN [Suspect]
     Indication: DIABETES MELLITUS
     Dosage: 81 MG EVERY DAY PO
     Route: 048
     Dates: start: 20090728, end: 20100722

REACTIONS (8)
  - CEREBRAL HAEMORRHAGE [None]
  - DIARRHOEA [None]
  - FALL [None]
  - HEADACHE [None]
  - INTERNATIONAL NORMALISED RATIO INCREASED [None]
  - MENTAL STATUS CHANGES [None]
  - NAUSEA [None]
  - VOMITING [None]
